FAERS Safety Report 11001642 (Version 1)
Quarter: 2015Q2

REPORT INFORMATION
  Report Type: Spontaneous
  Country: GB (occurrence: GB)
  Receive Date: 20150408
  Receipt Date: 20150408
  Transmission Date: 20150821
  Serious: Yes (Disabling)
  Sender: FDA-Public Use
  Company Number: GB-PFIZER INC-2015115372

PATIENT
  Age: 60 Year
  Sex: Male
  Weight: 72 kg

DRUGS (4)
  1. PARACETAMOL [Concomitant]
     Active Substance: ACETAMINOPHEN
     Dosage: TAKE 2 TABLETS AT BREAKFAST, LUNCH AND TEA TIME
     Dates: start: 20150203
  2. GABAPENTIN. [Suspect]
     Active Substance: GABAPENTIN
     Indication: PAIN
     Dosage: 100 MG, UNK
     Dates: start: 20150317
  3. KETOPROFEN. [Concomitant]
     Active Substance: KETOPROFEN
     Dosage: APPLY TWICE DAILY
     Dates: start: 20150126
  4. COCODAMOL [Concomitant]
     Active Substance: ACETAMINOPHEN\CODEINE PHOSPHATE
     Dosage: TAKE 2 TABLETS AT NIGHT INSTEAD OF PARACETAMOL
     Dates: start: 20150203, end: 20150303

REACTIONS (2)
  - Hallucination [Recovered/Resolved]
  - Nightmare [Unknown]

NARRATIVE: CASE EVENT DATE: 20150319
